FAERS Safety Report 13792440 (Version 1)
Quarter: 2017Q3

REPORT INFORMATION
  Report Type: Spontaneous
  Country: US (occurrence: US)
  Receive Date: 20170725
  Receipt Date: 20170725
  Transmission Date: 20171127
  Serious: Yes (Other)
  Sender: FDA-Public Use
  Company Number: US-ASTRAZENECA-2017SE74616

PATIENT
  Age: 74 Year
  Sex: Female
  Weight: 66.2 kg

DRUGS (26)
  1. ATENOLOL. [Suspect]
     Active Substance: ATENOLOL
     Indication: MITRAL VALVE PROLAPSE
     Route: 048
  2. ASPIRIN. [Concomitant]
     Active Substance: ASPIRIN
     Indication: MITRAL VALVE PROLAPSE
     Route: 048
  3. LYSINE [Concomitant]
     Active Substance: LYSINE
     Indication: ABDOMINAL DISCOMFORT
     Route: 048
  4. VITAMIN B12 [Concomitant]
     Active Substance: CYANOCOBALAMIN
     Indication: PROPHYLAXIS
     Route: 048
  5. CINAMON [Concomitant]
     Indication: BLOOD GLUCOSE ABNORMAL
     Route: 048
  6. FOLIC ACID. [Concomitant]
     Active Substance: FOLIC ACID
     Indication: TRICHORRHEXIS
     Route: 048
  7. HCTZ [Concomitant]
     Active Substance: HYDROCHLOROTHIAZIDE
     Indication: BLOOD PRESSURE ABNORMAL
     Route: 048
     Dates: start: 2000
  8. NIACIN. [Concomitant]
     Active Substance: NIACIN
     Indication: BLOOD CHOLESTEROL ABNORMAL
     Route: 048
  9. BRILINTA [Suspect]
     Active Substance: TICAGRELOR
     Indication: STENT PLACEMENT
     Route: 048
     Dates: start: 20170713
  10. ASPIRIN. [Concomitant]
     Active Substance: ASPIRIN
     Indication: PERIPHERAL ARTERIAL OCCLUSIVE DISEASE
     Route: 048
  11. ASPIRIN. [Concomitant]
     Active Substance: ASPIRIN
     Indication: BLOOD CHOLESTEROL ABNORMAL
     Route: 048
  12. CALCIUM [Concomitant]
     Active Substance: CALCIUM
     Indication: SCOLIOSIS
     Route: 048
     Dates: start: 1982
  13. CINAMON [Concomitant]
     Indication: BLOOD PRESSURE ABNORMAL
     Route: 048
  14. BRILINTA [Suspect]
     Active Substance: TICAGRELOR
     Indication: STENT PLACEMENT
     Route: 048
     Dates: start: 20170717
  15. BUSPIRONE [Concomitant]
     Active Substance: BUSPIRONE HYDROCHLORIDE
     Indication: ANXIETY
     Route: 048
     Dates: start: 1987, end: 2010
  16. MULTIVITAMIN [Concomitant]
     Active Substance: VITAMINS
     Route: 048
  17. NIACIN. [Concomitant]
     Active Substance: NIACIN
     Indication: PERIPHERAL ARTERIAL OCCLUSIVE DISEASE
     Route: 048
  18. BUSPIRONE [Concomitant]
     Active Substance: BUSPIRONE HYDROCHLORIDE
     Indication: ANXIETY
     Route: 048
     Dates: start: 2015
  19. DICYCLAMINE [Concomitant]
     Dosage: TAKEN 3 TIMES DAILY AS NEEDED
     Route: 048
  20. METHOCARBAMOL. [Concomitant]
     Active Substance: METHOCARBAMOL
     Indication: MUSCLE SPASMS
     Dosage: ON AND OFF SINCE THE EARLY 1990S THEN REGULARLY FOR 7 YEARS TAKEN TWICE DAILY BUT SOMETIMES 3 TIM...
     Route: 048
  21. ZYRTEC [Concomitant]
     Active Substance: CETIRIZINE HYDROCHLORIDE
     Indication: SEASONAL ALLERGY
     Route: 048
  22. ATENOLOL. [Suspect]
     Active Substance: ATENOLOL
     Indication: PERIPHERAL ARTERIAL OCCLUSIVE DISEASE
     Route: 048
  23. OMEPRAZOLE MAGNESIUM. [Suspect]
     Active Substance: OMEPRAZOLE MAGNESIUM
     Indication: GASTROOESOPHAGEAL REFLUX DISEASE
     Route: 048
  24. ESTER C [Concomitant]
     Indication: CONTUSION
     Route: 048
  25. FOLIC ACID. [Concomitant]
     Active Substance: FOLIC ACID
     Indication: ONYCHOCLASIS
     Route: 048
  26. BENADRYL [Concomitant]
     Active Substance: DIPHENHYDRAMINE HYDROCHLORIDE
     Indication: MULTIPLE ALLERGIES
     Dosage: AS REQUIRED
     Route: 048

REACTIONS (18)
  - Coronary artery stenosis [Recovering/Resolving]
  - Pain in jaw [Recovered/Resolved]
  - Dizziness [Not Recovered/Not Resolved]
  - Hypoaesthesia [Recovered/Resolved]
  - Breast cancer female [Unknown]
  - Oesophageal stenosis [Unknown]
  - Diarrhoea [Unknown]
  - Skin cancer [Unknown]
  - Irritable bowel syndrome [Unknown]
  - Blood cholesterol abnormal [Unknown]
  - Aphthous ulcer [Unknown]
  - Multiple allergies [Not Recovered/Not Resolved]
  - Intentional product misuse [Unknown]
  - Dyspnoea [Not Recovered/Not Resolved]
  - Large intestine polyp [Recovered/Resolved]
  - Fatigue [Not Recovered/Not Resolved]
  - Renal failure [Unknown]
  - Syncope [Recovered/Resolved]

NARRATIVE: CASE EVENT DATE: 2016
